FAERS Safety Report 9485333 (Version 2)
Quarter: 2013Q3

REPORT INFORMATION
  Report Type: Not Available
  Country: FR (occurrence: FR)
  Receive Date: 20130828
  Receipt Date: 20130910
  Transmission Date: 20140515
  Serious: Yes (Other)
  Sender: FDA-Public Use
  Company Number: FR-RB-057759-13

PATIENT
  Sex: Female

DRUGS (3)
  1. SUBUTEX [Suspect]
     Indication: PRODUCT USED FOR UNKNOWN INDICATION
     Route: 065
  2. SERTRALINE [Concomitant]
     Indication: PSYCHOTIC DISORDER
     Route: 065
  3. NOZINAN [Concomitant]
     Indication: PSYCHOTIC DISORDER
     Route: 065

REACTIONS (3)
  - Maternal exposure during pregnancy [Recovered/Resolved]
  - Drug abuse [Unknown]
  - Gestational diabetes [Unknown]
